FAERS Safety Report 6341300-8 (Version None)
Quarter: 2009Q3

REPORT INFORMATION
  Report Type: 
  Country: None (occurrence: None)
  Receive Date: 20090902
  Receipt Date: 20090902
  Transmission Date: 20100115
  Serious: Yes (Other)
  Sender: FDA-Public Use
  Company Number: None

PATIENT
  Age: 46 Year
  Sex: Female
  Weight: 56.6996 kg

DRUGS (10)
  1. OXCARBAZEPINE [Suspect]
     Indication: BIPOLAR DISORDER
     Dosage: 1200MG BID PO
     Route: 048
     Dates: start: 20090301, end: 20090901
  2. TRIAMTERENE AND HYDROCHLOROTHIAZIDE [Concomitant]
  3. CLONIDINE [Concomitant]
  4. CATAPRES-TTS-3 [Concomitant]
  5. LISINOPRIL [Concomitant]
  6. ESCITALOPRAM [Concomitant]
  7. ARIPIPRAZOLE [Concomitant]
  8. LABETALOL HCL [Concomitant]
  9. OXCARBAZEPINE [Concomitant]
  10. ATENOLOL [Concomitant]

REACTIONS (3)
  - HEADACHE [None]
  - HYPERTENSION [None]
  - HYPONATRAEMIA [None]
